FAERS Safety Report 8770855 (Version 1)
Quarter: 2012Q4

REPORT INFORMATION
  Report Type: 
  Country: US (occurrence: US)
  Receive Date: 20120906
  Receipt Date: 20120906
  Transmission Date: 20130627
  Serious: Yes (Hospitalization)
  Sender: FDA-Public Use
  Company Number: US-BAYER-2012-091254

PATIENT
  Age: 22 Year
  Sex: Female
  Weight: 69.84 kg

DRUGS (1)
  1. YASMIN [Suspect]

REACTIONS (2)
  - Pulmonary embolism [None]
  - Pelvic venous thrombosis [None]
